FAERS Safety Report 11586173 (Version 1)
Quarter: 2015Q3

REPORT INFORMATION
  Report Type: Spontaneous
  Country: US (occurrence: US)
  Receive Date: 20150916
  Receipt Date: 20150916
  Transmission Date: 20151125
  Serious: No
  Sender: FDA-Public Use
  Company Number: US-ELI_LILLY_AND_COMPANY-US200803005055

PATIENT
  Age: 32 Year
  Sex: Female

DRUGS (3)
  1. FORTEO [Suspect]
     Active Substance: TERIPARATIDE
     Indication: OSTEOARTHRITIS
     Dates: start: 20080226, end: 200803
  2. FORTEO [Suspect]
     Active Substance: TERIPARATIDE
     Dates: start: 20080320
  3. CORTICOSTEROIDS [Concomitant]
     Active Substance: CORTICOSTEROID NOS
     Indication: ADRENOGENITAL SYNDROME

REACTIONS (4)
  - Abdominal discomfort [Not Recovered/Not Resolved]
  - Blood cortisol decreased [Not Recovered/Not Resolved]
  - Nausea [Not Recovered/Not Resolved]
  - Blood corticotrophin [Not Recovered/Not Resolved]

NARRATIVE: CASE EVENT DATE: 200802
